FAERS Safety Report 12755181 (Version 1)
Quarter: 2016Q3

REPORT INFORMATION
  Report Type: Spontaneous
  Country: US (occurrence: US)
  Receive Date: 20160916
  Receipt Date: 20160916
  Transmission Date: 20161109
  Serious: Yes (Other)
  Sender: FDA-Public Use
  Company Number: US-PFIZER INC-2016430071

PATIENT
  Age: 62 Year
  Sex: Female

DRUGS (3)
  1. PRISTIQ EXTENDED-RELEASE [Suspect]
     Active Substance: DESVENLAFAXINE SUCCINATE
     Indication: DEPRESSION
     Dosage: 50 MG, 1X/DAY
     Route: 048
  2. OXYCODONE [Interacting]
     Active Substance: OXYCODONE
  3. BUSPAR [Interacting]
     Active Substance: BUSPIRONE HYDROCHLORIDE
     Indication: ANXIETY
     Dosage: 10 MG, UNK

REACTIONS (5)
  - Serotonin syndrome [Unknown]
  - Road traffic accident [Unknown]
  - Drug interaction [Unknown]
  - Distractibility [Unknown]
  - Confusional state [Unknown]

NARRATIVE: CASE EVENT DATE: 20160203
